FAERS Safety Report 25058665 (Version 1)
Quarter: 2025Q1

REPORT INFORMATION
  Report Type: Spontaneous
  Country: US (occurrence: US)
  Receive Date: 20250310
  Receipt Date: 20250310
  Transmission Date: 20250409
  Serious: No
  Sender: IPSEN BIOPHARMACEUTICALS, INC.
  Company Number: US-IPSEN Group, Research and Development-2025-04735

PATIENT
  Age: 4 Year
  Sex: Female

DRUGS (5)
  1. DYSPORT [Suspect]
     Active Substance: ABOBOTULINUMTOXINA
     Indication: Cerebral palsy
     Route: 030
     Dates: start: 20241026, end: 20241026
  2. BACLOFEN [Concomitant]
     Active Substance: BACLOFEN
  3. CLONIDINE [Concomitant]
     Active Substance: CLONIDINE
  4. TYLENOL [Concomitant]
     Active Substance: ACETAMINOPHEN
     Route: 048
  5. CHILDRENS MOTRIN [Concomitant]
     Active Substance: IBUPROFEN
     Route: 048

REACTIONS (3)
  - Vomiting [Unknown]
  - Muscle spasms [Unknown]
  - Agitation [Unknown]

NARRATIVE: CASE EVENT DATE: 20241026
